FAERS Safety Report 9655297 (Version 2)
Quarter: 2013Q4

REPORT INFORMATION
  Report Type: Spontaneous
  Country: US (occurrence: US)
  Receive Date: 20131029
  Receipt Date: 20131029
  Transmission Date: 20140711
  Serious: No
  Sender: FDA-Public Use
  Company Number: US-PURDUE-USA-2012-0087019

PATIENT
  Sex: Male

DRUGS (2)
  1. OXYCONTIN (NDA 22-272) [Suspect]
     Indication: PAIN
     Dosage: 40 MG, QID
  2. UNPECIFIED BREAKTHROUGH PAIN MEDICATION [Concomitant]
     Indication: PAIN

REACTIONS (3)
  - Breakthrough pain [Unknown]
  - Dyspepsia [Not Recovered/Not Resolved]
  - Inadequate analgesia [Unknown]
